FAERS Safety Report 13434327 (Version 2)
Quarter: 2017Q2

REPORT INFORMATION
  Report Type: Spontaneous
  Country: DE (occurrence: DE)
  Receive Date: 20170412
  Receipt Date: 20170530
  Transmission Date: 20170830
  Serious: Yes (Death, Life-Threatening, Hospitalization)
  Sender: FDA-Public Use
  Company Number: DE-BAYER-2016-227692

PATIENT
  Age: 74 Year
  Sex: Male
  Weight: 120 kg

DRUGS (3)
  1. METAMIZOL [Suspect]
     Active Substance: METAMIZOLE SODIUM
     Indication: POSTOPERATIVE ANALGESIA
     Dosage: 30 GTT, UNK
     Route: 042
     Dates: start: 20160829, end: 20160906
  2. CIPROBAY 400/200 MG/ML [Suspect]
     Active Substance: CIPROFLOXACIN HYDROCHLORIDE
     Indication: URINARY TRACT INFECTION
     Dosage: 400 MG, QD
     Route: 042
     Dates: start: 20160828, end: 20160906
  3. APIXABAN [Concomitant]
     Active Substance: APIXABAN

REACTIONS (4)
  - Bone marrow failure [Fatal]
  - Leukopenia [Fatal]
  - Thrombocytopenia [Fatal]
  - Drug hypersensitivity [Fatal]

NARRATIVE: CASE EVENT DATE: 20160906
